FAERS Safety Report 5261168-0 (Version None)
Quarter: 2007Q1

REPORT INFORMATION
  Report Type: 
  Country: None (occurrence: None)
  Receive Date: 20070309
  Receipt Date: 20070226
  Transmission Date: 20070707
  Serious: Yes (Other)
  Sender: FDA-Public Use
  Company Number: CA-PFIZER INC-2007004789

PATIENT
  Age: 62 Year
  Sex: Female

DRUGS (9)
  1. XALATAN [Suspect]
     Route: 047
  2. LIPITOR [Interacting]
     Route: 048
  3. METOPROLOL SUCCINATE [Interacting]
     Route: 048
  4. ACETYLSALICYLIC ACID SRT [Interacting]
     Route: 048
  5. PLAVIX [Interacting]
     Route: 048
  6. PREVACID [Interacting]
     Route: 048
  7. ALTACE [Concomitant]
     Route: 048
  8. IMOVANE [Concomitant]
     Route: 048
  9. MELOXICAM [Concomitant]
     Route: 048

REACTIONS (3)
  - DRUG INTERACTION [None]
  - EYE IRRITATION [None]
  - MYOCARDIAL INFARCTION [None]
